FAERS Safety Report 23179269 (Version 3)
Quarter: 2024Q1

REPORT INFORMATION
  Report Type: Spontaneous
  Country: US (occurrence: US)
  Receive Date: 20231113
  Receipt Date: 20240129
  Transmission Date: 20240410
  Serious: No
  Sender: FDA-Public Use
  Company Number: US-PFIZER INC-PV202300179199

PATIENT
  Age: 55 Year
  Sex: Female

DRUGS (1)
  1. XELJANZ XR [Suspect]
     Active Substance: TOFACITINIB CITRATE
     Indication: Colitis ulcerative
     Dosage: 22 MG, 1X/DAY
     Route: 048
     Dates: start: 202310, end: 20240123

REACTIONS (6)
  - Malaise [Unknown]
  - Chills [Unknown]
  - Nausea [Unknown]
  - Diarrhoea [Unknown]
  - Abdominal pain upper [Unknown]
  - Frequent bowel movements [Not Recovered/Not Resolved]

NARRATIVE: CASE EVENT DATE: 20230101
